APPROVED DRUG PRODUCT: OSELTAMIVIR PHOSPHATE
Active Ingredient: OSELTAMIVIR PHOSPHATE
Strength: EQ 75MG BASE
Dosage Form/Route: CAPSULE;ORAL
Application: A217467 | Product #003 | TE Code: AB
Applicant: INVAGEN PHARMACEUTICALS INC
Approved: Oct 3, 2023 | RLD: No | RS: No | Type: RX